FAERS Safety Report 25757543 (Version 1)
Quarter: 2025Q3

REPORT INFORMATION
  Report Type: Report from Study
  Country: TR (occurrence: TR)
  Receive Date: 20250903
  Receipt Date: 20250903
  Transmission Date: 20251021
  Serious: Yes (Other)
  Sender: UCB
  Company Number: TR-UCBSA-2025053561

PATIENT
  Age: 1 Day

DRUGS (1)
  1. CERTOLIZUMAB PEGOL [Suspect]
     Active Substance: CERTOLIZUMAB PEGOL
     Indication: Psoriatic arthropathy
     Route: 064

REACTIONS (3)
  - Premature baby [Unknown]
  - Paternal exposure before pregnancy [Unknown]
  - Paternal exposure during pregnancy [Unknown]
